FAERS Safety Report 15633510 (Version 1)
Quarter: 2018Q4

REPORT INFORMATION
  Report Type: Spontaneous
  Country: US (occurrence: US)
  Receive Date: 20181119
  Receipt Date: 20181119
  Transmission Date: 20190205
  Serious: No
  Sender: FDA-Public Use
  Company Number: US-SA-2018SA018437

PATIENT
  Sex: Female

DRUGS (14)
  1. ULTRAM [TRAMADOL HYDROCHLORIDE] [Concomitant]
     Dosage: UNK UNK,UNK
     Route: 065
  2. AUBAGIO [Suspect]
     Active Substance: TERIFLUNOMIDE
     Dosage: DOSE- 2 AUBAGIO IN A DAY
     Route: 048
  3. GABAPENTIN. [Concomitant]
     Active Substance: GABAPENTIN
     Dosage: UNK UNK,UNK
     Route: 065
  4. MELOXICAM. [Concomitant]
     Active Substance: MELOXICAM
     Dosage: UNK UNK,UNK
     Route: 065
  5. AUBAGIO [Suspect]
     Active Substance: TERIFLUNOMIDE
     Indication: PRODUCT USED FOR UNKNOWN INDICATION
     Dosage: 1 DF,QD
     Route: 048
  6. AUBAGIO [Suspect]
     Active Substance: TERIFLUNOMIDE
     Dosage: 1 DF,QD
     Route: 048
  7. CYCLOBENZAPRINE. [Concomitant]
     Active Substance: CYCLOBENZAPRINE
     Dosage: UNK UNK,UNK
     Route: 065
  8. AMOXICILLIN. [Concomitant]
     Active Substance: AMOXICILLIN
     Dosage: UNK UNK,UNK
     Route: 065
  9. IBUPROFEN. [Concomitant]
     Active Substance: IBUPROFEN
     Dosage: UNK UNK,UNK
     Route: 065
  10. ROPINIROLE. [Concomitant]
     Active Substance: ROPINIROLE
     Dosage: UNK UNK,UNK
     Route: 065
  11. TAMIFLU [Concomitant]
     Active Substance: OSELTAMIVIR PHOSPHATE
     Dosage: UNK UNK,UNK
     Route: 065
  12. METHYLPREDNISOLONE. [Concomitant]
     Active Substance: METHYLPREDNISOLONE
     Dosage: UNK UNK,UNK
     Route: 065
  13. AUBAGIO [Suspect]
     Active Substance: TERIFLUNOMIDE
     Dosage: 14 MG
     Route: 048
  14. CITALOPRAM HYDROBROMIDE. [Concomitant]
     Active Substance: CITALOPRAM HYDROBROMIDE
     Dosage: UNK UNK,UNK
     Route: 065

REACTIONS (2)
  - White blood cell disorder [Not Recovered/Not Resolved]
  - Extra dose administered [Unknown]
